FAERS Safety Report 4312334-X (Version None)
Quarter: 2004Q1

REPORT INFORMATION
  Report Type: 
  Country: None (occurrence: None)
  Receive Date: 20040303
  Receipt Date: 20040221
  Transmission Date: 20041129
  Serious: Yes (Other)
  Sender: FDA-Public Use
  Company Number: 2004011471

PATIENT
  Age: 9 Year
  Sex: Male
  Weight: 51.7101 kg

DRUGS (3)
  1. NEURONTIN [Suspect]
     Indication: CONVULSION
     Dates: start: 20001001
  2. VALPROATE SODIUM [Concomitant]
  3. DESLORATADINE (DESLORATADINE) [Concomitant]

REACTIONS (5)
  - ABNORMAL BEHAVIOUR [None]
  - BRAIN NEOPLASM MALIGNANT [None]
  - CONDITION AGGRAVATED [None]
  - PHARMACEUTICAL PRODUCT COMPLAINT [None]
  - SIMPLE PARTIAL SEIZURES [None]
